FAERS Safety Report 5971343-5 (Version None)
Quarter: 2008Q4

REPORT INFORMATION
  Report Type: 
  Country: None (occurrence: None)
  Receive Date: 20081128
  Receipt Date: 20081121
  Transmission Date: 20090506
  Serious: Yes (Death)
  Sender: FDA-Public Use
  Company Number: US-PFIZER INC-2008099482

PATIENT
  Age: 29 Year
  Sex: Male

DRUGS (4)
  1. LYRICA [Suspect]
     Indication: LUMBAR RADICULOPATHY
  2. LYRICA [Suspect]
     Indication: SPONDYLOLISTHESIS
  3. AMBIEN [Suspect]
  4. PERCOCET [Suspect]

REACTIONS (1)
  - DEATH [None]
